FAERS Safety Report 5601145-0 (Version None)
Quarter: 2008Q1

REPORT INFORMATION
  Report Type: 
  Country: None (occurrence: None)
  Receive Date: 20080118
  Receipt Date: 20080110
  Transmission Date: 20080703
  Serious: Yes (Life-Threatening, Hospitalization, Other)
  Sender: FDA-Public Use
  Company Number: 2008RL000006

PATIENT
  Age: 3 Year
  Sex: Male
  Weight: 11.0224 kg

DRUGS (3)
  1. ISRADIPINE [Suspect]
     Indication: HYPERTENSION
     Dosage: ;PO
     Route: 048
     Dates: start: 20070327, end: 20071022
  2. NICARDIPINE HCL [Suspect]
     Indication: HYPERTENSION
     Dosage: 1 MG;QH;IV
     Route: 042
     Dates: start: 20071019, end: 20071030
  3. CORGARD [Suspect]
     Indication: HYPERTENSION
     Dosage: 13 MG;QD;PO
     Route: 048
     Dates: start: 20061201, end: 20071030

REACTIONS (8)
  - ACUTE PULMONARY OEDEMA [None]
  - CONDITION AGGRAVATED [None]
  - COUGH [None]
  - DRUG INTERACTION [None]
  - HYPERTENSION [None]
  - LEFT VENTRICULAR FAILURE [None]
  - OEDEMA [None]
  - POST PROCEDURAL COMPLICATION [None]
